FAERS Safety Report 6234893-2 (Version None)
Quarter: 2009Q2

REPORT INFORMATION
  Report Type: 
  Country: None (occurrence: None)
  Receive Date: 20090618
  Receipt Date: 20090608
  Transmission Date: 20091009
  Serious: Yes (Hospitalization)
  Sender: FDA-Public Use
  Company Number: CH-PFIZER INC-2009203016

PATIENT
  Age: 50 Year

DRUGS (1)
  1. LYRICA [Suspect]

REACTIONS (1)
  - HEPATIC FUNCTION ABNORMAL [None]
